FAERS Safety Report 15308079 (Version 1)
Quarter: 2018Q3

REPORT INFORMATION
  Report Type: Report from Study
  Country: US (occurrence: US)
  Receive Date: 20180822
  Receipt Date: 20180822
  Transmission Date: 20181010
  Serious: Yes (Other)
  Sender: FDA-Public Use
  Company Number: US-BRISTOL-MYERS SQUIBB COMPANY-BMS-2018-077447

PATIENT
  Age: 64 Year
  Sex: Female
  Weight: 104.6 kg

DRUGS (2)
  1. NIVOLUMAB [Suspect]
     Active Substance: NIVOLUMAB
     Indication: UTERINE CANCER
     Dosage: 240 MG, Q2WK
     Route: 042
     Dates: start: 20180523, end: 20180523
  2. IPILIMUMAB [Suspect]
     Active Substance: IPILIMUMAB
     Indication: UTERINE CANCER
     Dosage: 110 MG, QMO
     Route: 042
     Dates: start: 20180523, end: 20180523

REACTIONS (1)
  - Urinary tract obstruction [Not Recovered/Not Resolved]

NARRATIVE: CASE EVENT DATE: 20180702
